FAERS Safety Report 16310065 (Version 2)
Quarter: 2019Q2

REPORT INFORMATION
  Report Type: Spontaneous
  Country: US (occurrence: US)
  Receive Date: 20190514
  Receipt Date: 20190516
  Transmission Date: 20190711
  Serious: No
  Sender: FDA-Public Use
  Company Number: US-BIOMARINAP-US-2019-123534

PATIENT
  Sex: Female
  Weight: 19.05 kg

DRUGS (1)
  1. VIMIZIM [Suspect]
     Active Substance: ELOSULFASE ALFA
     Indication: MUCOPOLYSACCHARIDOSIS IV
     Dosage: UNK UNK, QW
     Route: 042
     Dates: start: 20150615

REACTIONS (7)
  - Retching [Unknown]
  - Aggression [Unknown]
  - Pharyngeal disorder [Unknown]
  - Tonsillar hypertrophy [Unknown]
  - Oropharyngeal pain [Unknown]
  - Fear [Unknown]
  - Adenoiditis [Unknown]
